FAERS Safety Report 17310853 (Version 1)
Quarter: 2020Q1

REPORT INFORMATION
  Report Type: Spontaneous
  Country: US (occurrence: US)
  Receive Date: 20200123
  Receipt Date: 20200123
  Transmission Date: 20200409
  Serious: Yes (Other)
  Sender: FDA-Public Use
  Company Number: US-ROCHE-2331684

PATIENT
  Age: 10 Year
  Sex: Female

DRUGS (2)
  1. OBIZUR [Concomitant]
     Active Substance: ANTIHEMOPHILIC FACTOR PORCINE, B-DOMAIN TRUNCATED RECOMBINANT
     Dosage: LOADING DOSE: 180 U/KG, FOLLOWED BY A CONTINUOUS INFUSION RANGING BETWEEN 50 AND 100 UNITS/KG/H
     Route: 065
  2. RITUXIMAB. [Suspect]
     Active Substance: RITUXIMAB
     Indication: AUTOIMMUNE DISORDER
     Route: 041

REACTIONS (4)
  - Infection [Recovered/Resolved]
  - Staphylococcal bacteraemia [Recovered/Resolved]
  - Cellulitis [Recovered/Resolved]
  - Osteomyelitis [Recovered/Resolved]
